FAERS Safety Report 14154527 (Version 10)
Quarter: 2019Q4

REPORT INFORMATION
  Report Type: Report from Study
  Country: US (occurrence: US)
  Receive Date: 20171102
  Receipt Date: 20191224
  Transmission Date: 20200122
  Serious: Yes (Hospitalization)
  Sender: FDA-Public Use
  Company Number: US-ACTELION-A-NJ2017-158827

PATIENT
  Age: 58 Year
  Sex: Female
  Weight: 98.87 kg

DRUGS (17)
  1. CEFAZOLIN [Concomitant]
     Active Substance: CEFAZOLIN
  2. SILDENAFIL CITRATE. [Concomitant]
     Active Substance: SILDENAFIL CITRATE
  3. GABAPENTIN. [Concomitant]
     Active Substance: GABAPENTIN
  4. MULTI VITAMIN [Concomitant]
     Active Substance: VITAMINS
  5. VELETRI [Suspect]
     Active Substance: EPOPROSTENOL
     Indication: PULMONARY ARTERIAL HYPERTENSION
     Dosage: 26 NG/KG, PER MIN
     Route: 042
  6. VELETRI [Suspect]
     Active Substance: EPOPROSTENOL
     Dosage: 23 NG/KG, PER MIN
     Route: 042
  7. HYDROMORPHONE [Concomitant]
     Active Substance: HYDROMORPHONE
  8. PANTOPRAZOLE [Concomitant]
     Active Substance: PANTOPRAZOLE
  9. POLYETHYLENE GLYCOL [Concomitant]
     Active Substance: POLYETHYLENE GLYCOLS
  10. VELETRI [Suspect]
     Active Substance: EPOPROSTENOL
     Dosage: 20 NG/KG, PER MIN
     Route: 042
  11. ACETAMINOPHEN. [Concomitant]
     Active Substance: ACETAMINOPHEN
  12. FENTANYL. [Concomitant]
     Active Substance: FENTANYL
  13. VELETRI [Suspect]
     Active Substance: EPOPROSTENOL
     Dosage: 24 NG/KG, PER MIN
     Route: 042
  14. BUPIVACAINE. [Concomitant]
     Active Substance: BUPIVACAINE
  15. OPSUMIT [Suspect]
     Active Substance: MACITENTAN
     Indication: PULMONARY ARTERIAL HYPERTENSION
     Dosage: 10 MG, QD
     Route: 048
     Dates: start: 20160712
  16. ENOXAPARIN [Concomitant]
     Active Substance: ENOXAPARIN
  17. ONDANSETRON [Concomitant]
     Active Substance: ONDANSETRON

REACTIONS (29)
  - Alanine aminotransferase increased [Recovered/Resolved]
  - Pain in extremity [Unknown]
  - Cold sweat [Unknown]
  - Insomnia [Unknown]
  - Rash [Unknown]
  - Cholecystectomy [Recovered/Resolved]
  - Abdominal pain [Recovered/Resolved]
  - Tendonitis [Unknown]
  - Sinusitis [Unknown]
  - Neuropathy peripheral [Unknown]
  - Rash erythematous [Unknown]
  - Chest discomfort [Unknown]
  - Respiratory tract infection [Unknown]
  - Diarrhoea [Unknown]
  - Pallor [Unknown]
  - Device leakage [Unknown]
  - Cholelithiasis [Recovered/Resolved]
  - Dyspepsia [Unknown]
  - Pain [Unknown]
  - Fatigue [Unknown]
  - Pain in jaw [Unknown]
  - Abdominal discomfort [Unknown]
  - Dyspnoea [Unknown]
  - Condition aggravated [Unknown]
  - Biliary colic [Recovered/Resolved]
  - Headache [Unknown]
  - Erythema [Unknown]
  - Nausea [Unknown]
  - Neuralgia [Unknown]

NARRATIVE: CASE EVENT DATE: 20161124
